FAERS Safety Report 20470465 (Version 1)
Quarter: 2022Q1

REPORT INFORMATION
  Report Type: Spontaneous
  Country: US (occurrence: None)
  Receive Date: 20220212
  Receipt Date: 20220212
  Transmission Date: 20220423
  Serious: No
  Sender: FDA-Public Use
  Company Number: None

PATIENT
  Age: 70 Year
  Sex: Male

DRUGS (2)
  1. POMALYST [Suspect]
     Active Substance: POMALIDOMIDE
     Indication: Plasma cell myeloma
     Dosage: FREQUENCY : DAILY;?
     Route: 048
     Dates: start: 20160517
  2. CYCLOPHOSPHAMIDE [Suspect]
     Active Substance: CYCLOPHOSPHAMIDE

REACTIONS (8)
  - Syncope [None]
  - Diarrhoea [None]
  - Gastroenteritis viral [None]
  - Astrovirus test positive [None]
  - Hypertension [None]
  - Dehydration [None]
  - Sepsis [None]
  - Neutropenia [None]

NARRATIVE: CASE EVENT DATE: 20211220
